FAERS Safety Report 15693215 (Version 2)
Quarter: 2018Q4

REPORT INFORMATION
  Report Type: Spontaneous
  Country: US (occurrence: US)
  Receive Date: 20181206
  Receipt Date: 20181219
  Transmission Date: 20190205
  Serious: No
  Sender: FDA-Public Use
  Company Number: US-AMGEN-USASP2018171710

PATIENT
  Age: 74 Year
  Sex: Female

DRUGS (6)
  1. NEXIUM [Concomitant]
     Active Substance: ESOMEPRAZOLE MAGNESIUM
     Dosage: 40 MG, QD
  2. SIMVASTATIN. [Concomitant]
     Active Substance: SIMVASTATIN
     Dosage: 40 MG, QD
  3. IMIPRAMINE [Concomitant]
     Active Substance: IMIPRAMINE
     Indication: HYPERTONIC BLADDER
     Dosage: 25 MG, QD
  4. LEVOTHYROXINE. [Concomitant]
     Active Substance: LEVOTHYROXINE
     Indication: BASEDOW^S DISEASE
     Dosage: 150 MUG, QD
  5. CELEBREX [Concomitant]
     Active Substance: CELECOXIB
     Indication: ROTATOR CUFF SYNDROME
     Dosage: 200 MG, QD
  6. PROLIA [Suspect]
     Active Substance: DENOSUMAB
     Indication: OSTEOPOROSIS POSTMENOPAUSAL
     Dosage: 60 MG, UNK
     Route: 065
     Dates: start: 20180731

REACTIONS (2)
  - Tooth infection [Unknown]
  - Toothache [Unknown]

NARRATIVE: CASE EVENT DATE: 20180801
